FAERS Safety Report 7347380-5 (Version None)
Quarter: 2011Q1

REPORT INFORMATION
  Report Type: 
  Country: None (occurrence: None)
  Receive Date: 20110311
  Receipt Date: 20110228
  Transmission Date: 20110831
  Serious: Yes (Other)
  Sender: FDA-Public Use
  Company Number: JP-ROCHE-763928

PATIENT
  Age: 60 Year
  Sex: Male

DRUGS (4)
  1. XELODA [Suspect]
     Indication: LARGE INTESTINE CARCINOMA
     Route: 048
     Dates: start: 20100408, end: 20110101
  2. XELODA [Suspect]
     Route: 048
     Dates: start: 20110101, end: 20110204
  3. AVASTIN [Suspect]
     Indication: LARGE INTESTINE CARCINOMA
     Dosage: NOTE: DOSAGE IS UNCERTAIN.
     Route: 041
     Dates: start: 20100401
  4. ELPLAT [Suspect]
     Indication: LARGE INTESTINE CARCINOMA
     Route: 041
     Dates: start: 20100401

REACTIONS (2)
  - SUDDEN HEARING LOSS [None]
  - HYPOAESTHESIA [None]
